FAERS Safety Report 24070633 (Version 1)
Quarter: 2024Q3

REPORT INFORMATION
  Report Type: Spontaneous
  Country: GB (occurrence: GB)
  Receive Date: 20240710
  Receipt Date: 20240710
  Transmission Date: 20241016
  Serious: No
  Sender: ROCHE
  Company Number: None

PATIENT
  Age: 53 Year
  Sex: Female

DRUGS (1)
  1. PHESGO [Suspect]
     Active Substance: HYALURONIDASE-ZZXF\PERTUZUMAB\TRASTUZUMAB
     Indication: Breast cancer
     Dosage: PERTUZUMAB 600MG/TRASTUZUMAB 600MG SC INJ. 10ML - GIVE AS A SUBCUTANEOUS BOLUS INJECTION OVER 5 M...
     Route: 058

REACTIONS (2)
  - Arthralgia [Unknown]
  - Influenza [Unknown]

NARRATIVE: CASE EVENT DATE: 20240404
